FAERS Safety Report 9237313 (Version 1)
Quarter: 2013Q2

REPORT INFORMATION
  Report Type: Spontaneous
  Country: TR (occurrence: TR)
  Receive Date: 20130417
  Receipt Date: 20130417
  Transmission Date: 20140414
  Serious: Yes (Other)
  Sender: FDA-Public Use
  Company Number: TR-MYLANLABS-2013S1007783

PATIENT
  Age: 43 Year
  Sex: Female

DRUGS (2)
  1. ESCITALOPRAM [Suspect]
     Dosage: 20 MG/DAY
     Route: 065
  2. ISONIAZID [Interacting]
     Indication: TUBERCULIN TEST POSITIVE
     Route: 065

REACTIONS (3)
  - Serotonin syndrome [Recovered/Resolved]
  - Electromyogram abnormal [Recovered/Resolved]
  - Drug interaction [Recovered/Resolved]
